FAERS Safety Report 9053726 (Version 2)
Quarter: 2013Q2

REPORT INFORMATION
  Report Type: Spontaneous
  Country: US (occurrence: US)
  Receive Date: 20130208
  Receipt Date: 20130530
  Transmission Date: 20140414
  Serious: Yes (Hospitalization)
  Sender: FDA-Public Use
  Company Number: US-B.I. PHARMACEUTICALS,INC./RIDGEFIELD-2013-BI-03370BP

PATIENT
  Age: 62 Year
  Sex: Male
  Weight: 77.11 kg

DRUGS (10)
  1. PRADAXA [Suspect]
     Indication: ANTICOAGULANT THERAPY
     Dosage: 300 MG
     Dates: start: 20110830, end: 20110909
  2. PRADAXA [Suspect]
     Indication: ATRIAL FIBRILLATION
  3. NIFEDIPINE XL [Concomitant]
     Dosage: 60 MG
  4. CLONIDINE [Concomitant]
     Dosage: 0.6 MG
  5. METOPROLOL [Concomitant]
     Dosage: 100 MG
  6. GLIMEPIRIDE [Concomitant]
     Dosage: 8 MG
  7. ASPIRIN [Concomitant]
     Dosage: 81 MG
  8. METFORMIN [Concomitant]
     Dosage: 1000 MG
  9. LIPITOR [Concomitant]
     Dosage: 40 MG
  10. CHLORTHALIDONE [Concomitant]
     Dosage: 25 MG

REACTIONS (3)
  - Gastrointestinal haemorrhage [Unknown]
  - Duodenal ulcer [Unknown]
  - Anaemia [Unknown]
